FAERS Safety Report 14959121 (Version 1)
Quarter: 2018Q2

REPORT INFORMATION
  Report Type: Report from Study
  Country: None (occurrence: BE)
  Receive Date: 20180531
  Receipt Date: 20180531
  Transmission Date: 20180711
  Serious: Yes (Death)
  Sender: FDA-Public Use
  Company Number: BE-ABBVIE-18K-013-2370042-00

PATIENT
  Sex: Female

DRUGS (2)
  1. DUODOPA [Suspect]
     Active Substance: CARBIDOPA\LEVODOPA
     Indication: PARKINSON^S DISEASE
     Dosage: MD= 4ML??CD= 2.7ML/HR DURING 16HRS ??ED= 1ML
     Route: 050
     Dates: start: 20171211, end: 20171213
  2. DUODOPA [Suspect]
     Active Substance: CARBIDOPA\LEVODOPA
     Dosage: MD= 7ML?CD= 2.2 ML/HR DURING 16HRS ?ED= 1ML
     Route: 050
     Dates: start: 20171213

REACTIONS (2)
  - Pneumonia [Fatal]
  - General physical health deterioration [Fatal]
